FAERS Safety Report 14180002 (Version 1)
Quarter: 2017Q4

REPORT INFORMATION
  Report Type: Spontaneous
  Country: US (occurrence: US)
  Receive Date: 20171110
  Receipt Date: 20171110
  Transmission Date: 20180321
  Serious: No
  Sender: FDA-Public Use
  Company Number: US-G+W LABS-GW2017US000122

PATIENT

DRUGS (1)
  1. CLINDAMYCIN HYDROCHLORIDE. [Suspect]
     Active Substance: CLINDAMYCIN HYDROCHLORIDE
     Indication: TONSILLITIS
     Dosage: 1 CAPSULE 4 TIMES DAILY
     Route: 048
     Dates: start: 20170405, end: 20170406

REACTIONS (1)
  - Product use complaint [Recovered/Resolved]

NARRATIVE: CASE EVENT DATE: 20170405
